FAERS Safety Report 5284686-8 (Version None)
Quarter: 2007Q1

REPORT INFORMATION
  Report Type: 
  Country: None (occurrence: None)
  Receive Date: 20061222
  Receipt Date: 20060806
  Transmission Date: 20070707
  Serious: Yes (Other)
  Sender: FDA-Public Use
  Company Number: CHPA2006US06863

PATIENT
  Age: 36 Year
  Sex: Female
  Weight: 54.4 kg

DRUGS (1)
  1. TRANSDERM SCOP [Suspect]
     Indication: PROPHYLAXIS AGAINST MOTION SICKNESS
     Dosage: 1.5 MG, TRANSDERMAL
     Route: 062
     Dates: start: 20060630, end: 20060630

REACTIONS (4)
  - MEMORY IMPAIRMENT [None]
  - MYDRIASIS [None]
  - UNEVALUABLE EVENT [None]
  - VISION BLURRED [None]
